FAERS Safety Report 6247114-1 (Version None)
Quarter: 2009Q2

REPORT INFORMATION
  Report Type: 
  Country: None (occurrence: None)
  Receive Date: 20090626
  Receipt Date: 20090615
  Transmission Date: 20091009
  Serious: Yes (Hospitalization, Other)
  Sender: FDA-Public Use
  Company Number: PHHY2009JP18385

PATIENT
  Sex: Female
  Weight: 36 kg

DRUGS (27)
  1. STI571/CGP57148B T35717+TAB [Suspect]
     Indication: ACUTE LYMPHOCYTIC LEUKAEMIA
     Dosage: 600 MG/DAY
     Route: 048
     Dates: start: 20071026, end: 20071102
  2. STI571/CGP57148B T35717+TAB [Suspect]
     Dosage: 600 MG/DAY
     Route: 048
     Dates: start: 20071129, end: 20071216
  3. STI571/CGP57148B T35717+TAB [Suspect]
     Dosage: 600 MG DIVIDED INTO TWO TIMES DAILY
     Route: 048
     Dates: start: 20071217, end: 20080124
  4. STI571/CGP57148B T35717+TAB [Suspect]
     Dosage: 600 MG DIVIDED INTO FOUR TIMES DAILY
     Route: 048
     Dates: start: 20080125, end: 20080309
  5. STI571/CGP57148B T35717+TAB [Suspect]
     Dosage: 100 MG/DAY
     Route: 048
     Dates: start: 20080421
  6. CYANOCOBALAMIN [Concomitant]
     Dosage: 1500 UG/DAY
     Route: 048
     Dates: start: 20080930
  7. NEUROTROPIN [Concomitant]
     Dosage: 4 DF/DAY
     Route: 048
     Dates: start: 20080930
  8. DEPAS [Concomitant]
     Dosage: 0.5 MG/DAY
     Route: 048
     Dates: start: 20071106
  9. JUVELA [Concomitant]
     Dosage: 150 MG/DAY
     Route: 048
     Dates: start: 20090313
  10. LENDORMIN [Concomitant]
     Dosage: 0.25 MG/DAY
     Dates: start: 20071106
  11. BAKTAR [Concomitant]
     Indication: PROPHYLAXIS
     Dosage: 4 DF, UNK
     Route: 048
     Dates: start: 20071026, end: 20080811
  12. ALOSITOL [Concomitant]
     Indication: ACUTE LYMPHOCYTIC LEUKAEMIA
     Dosage: 200 MG, UNK
     Route: 048
     Dates: start: 20071026, end: 20071101
  13. OZEX [Concomitant]
     Indication: PROPHYLAXIS
     Dosage: 450 MG, UNK
     Route: 048
     Dates: start: 20071026, end: 20071108
  14. DIFLUCAN [Concomitant]
     Indication: PROPHYLAXIS
     Dosage: 200 MG, UNK
     Route: 048
     Dates: start: 20071026, end: 20071111
  15. GASTER D [Concomitant]
     Indication: PROPHYLAXIS
     Dosage: 20 MG, UNK
     Route: 048
     Dates: start: 20071029, end: 20071031
  16. TAKEPRON [Concomitant]
     Indication: PROPHYLAXIS
     Dosage: 30 MG, UNK
     Route: 048
     Dates: start: 20071031, end: 20071218
  17. PURSENNID                               /SCH/ [Concomitant]
     Indication: PROPHYLAXIS
     Dosage: 24 MG, UNK
     Route: 048
     Dates: start: 20071112, end: 20071115
  18. PROMAC                                  /JPN/ [Concomitant]
     Indication: PROPHYLAXIS
     Dosage: 150 MG, UNK
     Route: 048
     Dates: start: 20071219, end: 20080521
  19. ALLEGRA [Concomitant]
     Indication: PROPHYLAXIS
     Dosage: 120 MG, UNK
     Route: 048
     Dates: start: 20080219, end: 20080521
  20. ITRIZOLE [Concomitant]
     Indication: PROPHYLAXIS
     Dosage: 20 ML, UNK
     Route: 048
     Dates: start: 20080412, end: 20080528
  21. SOLU-CORTEF [Concomitant]
     Indication: PROPHYLAXIS
     Dosage: 100 MG, UNK
     Route: 042
     Dates: start: 20071116, end: 20080409
  22. KYTRIL [Concomitant]
     Indication: PROPHYLAXIS
     Dosage: 3 MG, UNK
     Route: 042
     Dates: start: 20080111, end: 20080406
  23. PLATELETS [Concomitant]
     Indication: ACUTE LYMPHOCYTIC LEUKAEMIA
     Dosage: 10 IU, UNK
     Route: 042
     Dates: start: 20071026, end: 20080409
  24. HUMAN RED BLOOD CELLS [Concomitant]
     Indication: ACUTE LYMPHOCYTIC LEUKAEMIA
     Dosage: 2 IU, UNK
     Route: 042
     Dates: start: 20071031, end: 20080409
  25. POLARAMINE [Concomitant]
     Indication: PROPHYLAXIS
     Dosage: 10 MG, UNK
     Route: 042
     Dates: start: 20080427, end: 20080428
  26. GASMOTIN [Concomitant]
     Indication: PROPHYLAXIS
     Dosage: 15 MG, UNK
     Route: 048
     Dates: start: 20080427, end: 20080513
  27. DOGMATYL [Concomitant]
     Indication: INSOMNIA
     Dosage: 150 MG, UNK
     Route: 048
     Dates: start: 20080506, end: 20080908

REACTIONS (6)
  - ANAPHYLACTIC SHOCK [None]
  - ATRIAL FIBRILLATION [None]
  - DYSPNOEA EXERTIONAL [None]
  - ORGANISING PNEUMONIA [None]
  - OSTEOMYELITIS [None]
  - PNEUMONIA [None]
